FAERS Safety Report 9555339 (Version 1)
Quarter: 2013Q3

REPORT INFORMATION
  Report Type: Spontaneous
  Country: US (occurrence: None)
  Receive Date: 20130816
  Receipt Date: 20130816
  Transmission Date: 20140515
  Serious: No
  Sender: FDA-Public Use
  Company Number: US-011835

PATIENT
  Age: 65 Year
  Sex: Male
  Weight: 77.11 kg

DRUGS (4)
  1. PICO-SALAX (NOT SPECIFIED) [Suspect]
     Indication: BOWEL PREPARATION
     Dosage: FIRST PACKET AT 1 PM EST) TO CONTINUING?
     Dates: start: 20130523
  2. LEXAPRO [Concomitant]
  3. NEXIUM [Concomitant]
  4. PRAVASTATIN [Concomitant]

REACTIONS (1)
  - Treatment noncompliance [None]
